FAERS Safety Report 8550262-4 (Version None)
Quarter: 2012Q3

REPORT INFORMATION
  Report Type: 
  Country: None (occurrence: None)
  Receive Date: 20120730
  Receipt Date: 20120724
  Transmission Date: 20120928
  Serious: Yes (Other)
  Sender: FDA-Public Use
  Company Number: PHHY2011US05906

PATIENT
  Sex: Female

DRUGS (2)
  1. DIOVAN [Concomitant]
     Indication: HYPERTENSION
     Dosage: UNK UKN, UNK
  2. GILENYA [Suspect]
     Indication: MULTIPLE SCLEROSIS
     Dosage: 0.5 MG, QD
     Route: 048
     Dates: start: 20101221

REACTIONS (5)
  - DIZZINESS [None]
  - HYPOTENSION [None]
  - HEART RATE ABNORMAL [None]
  - URINARY TRACT INFECTION [None]
  - DYSPNOEA [None]
